FAERS Safety Report 5914322-6 (Version None)
Quarter: 2008Q4

REPORT INFORMATION
  Report Type: 
  Country: None (occurrence: None)
  Receive Date: 20081009
  Receipt Date: 20080929
  Transmission Date: 20090506
  Serious: Yes (Other)
  Sender: FDA-Public Use
  Company Number: GB-PFIZER INC-2008082238

PATIENT
  Age: 53 Year
  Sex: Female
  Weight: 59 kg

DRUGS (4)
  1. CHANTIX [Suspect]
     Indication: SMOKING CESSATION THERAPY
     Route: 048
     Dates: start: 20080620, end: 20080812
  2. SALBUTAMOL [Concomitant]
  3. SERETIDE [Concomitant]
  4. TIOTROPIUM BROMIDE [Concomitant]

REACTIONS (3)
  - AGGRESSION [None]
  - PERSONALITY CHANGE [None]
  - SUICIDAL IDEATION [None]
